FAERS Safety Report 9274403 (Version 2)
Quarter: 2013Q2

REPORT INFORMATION
  Report Type: Spontaneous
  Country: BR (occurrence: BR)
  Receive Date: 20130506
  Receipt Date: 20130624
  Transmission Date: 20140414
  Serious: Yes (Hospitalization)
  Sender: FDA-Public Use
  Company Number: BR-ELI_LILLY_AND_COMPANY-BR201304008343

PATIENT
  Age: 9 Year
  Sex: Female
  Weight: 41 kg

DRUGS (7)
  1. HUMULIN REGULAR [Suspect]
     Indication: TYPE 1 DIABETES MELLITUS
     Dosage: 6 IU, EACH MORNING
     Route: 058
     Dates: start: 201109
  2. HUMULIN REGULAR [Suspect]
     Dosage: 6 IU, QD
     Route: 058
     Dates: start: 201109
  3. HUMULIN REGULAR [Suspect]
     Dosage: 2 IU, EACH EVENING
     Route: 058
     Dates: start: 201109
  4. HUMULIN REGULAR [Suspect]
     Dosage: UNK, UNKNOWN
     Route: 065
  5. HUMULIN REGULAR [Suspect]
     Dosage: UNK, UNKNOWN
     Route: 065
  6. HUMULIN NPH [Suspect]
     Indication: TYPE 1 DIABETES MELLITUS
     Dosage: 30 IU, EACH MORNING
     Route: 058
     Dates: start: 201109
  7. HUMULIN NPH [Suspect]
     Dosage: 14 IU, EACH EVENING
     Route: 058
     Dates: start: 201109

REACTIONS (2)
  - Hyperglycaemia [Recovered/Resolved]
  - Hypoglycaemia [Recovered/Resolved]
